FAERS Safety Report 24394244 (Version 2)
Quarter: 2024Q4

REPORT INFORMATION
  Report Type: Spontaneous
  Country: CN (occurrence: CN)
  Receive Date: 20241004
  Receipt Date: 20241011
  Transmission Date: 20250115
  Serious: Yes (Hospitalization)
  Sender: ABBVIE
  Company Number: CN-ABBVIE-5944868

PATIENT
  Age: 60 Year
  Sex: Male
  Weight: 63 kg

DRUGS (1)
  1. UPADACITINIB [Suspect]
     Active Substance: UPADACITINIB
     Indication: Dermatitis atopic
     Dosage: 15 MILLIGRAM
     Route: 048
     Dates: start: 20240904, end: 20240925

REACTIONS (3)
  - Platelet count decreased [Not Recovered/Not Resolved]
  - Haemoptysis [Unknown]
  - Nasopharyngitis [Unknown]

NARRATIVE: CASE EVENT DATE: 20240901
